FAERS Safety Report 14984106 (Version 1)
Quarter: 2018Q2

REPORT INFORMATION
  Report Type: Report from Study
  Country: GR (occurrence: GR)
  Receive Date: 20180607
  Receipt Date: 20180607
  Transmission Date: 20180711
  Serious: Yes (Other)
  Sender: FDA-Public Use
  Company Number: GR-AMGEN-GRCNI2018074976

PATIENT
  Age: 70 Year
  Sex: Male

DRUGS (9)
  1. BLINATUMOMAB [Suspect]
     Active Substance: BLINATUMOMAB
     Indication: DIFFUSE LARGE B-CELL LYMPHOMA
     Dosage: UNK
     Route: 042
     Dates: start: 20180309, end: 20180331
  2. CLEXANE [Concomitant]
     Active Substance: ENOXAPARIN SODIUM
     Dosage: 0.6 UNK, QD
     Route: 058
     Dates: start: 20180506
  3. CONCOR [Concomitant]
     Active Substance: BISOPROLOL FUMARATE
     Dosage: 2.5 UNK, QD
     Route: 048
     Dates: start: 20180506
  4. BLINATUMOMAB [Suspect]
     Active Substance: BLINATUMOMAB
     Dosage: 9 MCG, QD
     Route: 042
     Dates: start: 20180512
  5. NEUROBION [Concomitant]
     Active Substance: CYANOCOBALAMIN\PYRIDOXINE\THIAMINE
     Dosage: 1 UNK, BID
     Route: 048
     Dates: start: 20180506
  6. CLONOTRIL [Concomitant]
     Active Substance: CLONAZEPAM
     Dosage: 1/4 UNK, BID
     Route: 048
     Dates: start: 20180506
  7. SEROPRAM (CITALOPRAM HYDROBROMIDE) [Concomitant]
     Active Substance: CITALOPRAM HYDROBROMIDE
     Dosage: 20 UNK, QD
     Route: 048
     Dates: start: 20180506
  8. BLINATUMOMAB [Suspect]
     Active Substance: BLINATUMOMAB
     Dosage: 28 MCG, QD
     Route: 042
     Dates: start: 20180519
  9. LASIX [Concomitant]
     Active Substance: FUROSEMIDE
     Dosage: 1/2 UNK, QOD
     Route: 048
     Dates: start: 20180506

REACTIONS (2)
  - Xerophthalmia [Recovering/Resolving]
  - Ulcerative keratitis [Recovering/Resolving]

NARRATIVE: CASE EVENT DATE: 20180524
